FAERS Safety Report 4697258-0 (Version None)
Quarter: 2005Q2

REPORT INFORMATION
  Report Type: 
  Country: None (occurrence: None)
  Receive Date: 20050622
  Receipt Date: 20050425
  Transmission Date: 20051028
  Serious: Yes (Death, Hospitalization)
  Sender: FDA-Public Use
  Company Number: JP-BRISTOL-MYERS SQUIBB COMPANY-12945820

PATIENT
  Age: 61 Year
  Sex: Male

DRUGS (4)
  1. TAXOL [Suspect]
     Indication: GASTRIC CANCER
     Route: 042
     Dates: start: 20050418, end: 20050418
  2. ISOSORBIDE DINITRATE [Concomitant]
  3. AMLODIPINE BESYLATE [Concomitant]
  4. AZULENE SODIUM SULFONATE + L-GLUTAMINE [Concomitant]

REACTIONS (1)
  - INTERSTITIAL LUNG DISEASE [None]
